FAERS Safety Report 24296132 (Version 1)
Quarter: 2024Q3

REPORT INFORMATION
  Report Type: Spontaneous
  Country: US (occurrence: US)
  Receive Date: 20240909
  Receipt Date: 20240909
  Transmission Date: 20241017
  Serious: No
  Sender: ALEMBIC
  Company Number: US-ALEMBIC PHARMACUETICALS LIMITED-2024SCAL001278

PATIENT

DRUGS (5)
  1. CLOBETASOL PROPIONATE [Suspect]
     Active Substance: CLOBETASOL PROPIONATE
     Indication: Lichen sclerosus
     Dosage: UNK
     Route: 065
  2. COMBIPATCH [Concomitant]
     Active Substance: ESTRADIOL\NORETHINDRONE ACETATE
     Indication: Atrophic vulvovaginitis
     Dosage: 0.05/0.14 MILLIGRAM
     Route: 062
  3. ESTRADIOL [Concomitant]
     Active Substance: ESTRADIOL
     Indication: Atrophy
     Dosage: UNK
     Route: 065
     Dates: start: 202402
  4. DEVICE [Concomitant]
     Active Substance: DEVICE
     Indication: Skin abrasion
     Dosage: UNK
     Route: 065
  5. ZINC OXIDE [Concomitant]
     Active Substance: ZINC OXIDE
     Indication: Skin abrasion
     Dosage: UNK
     Route: 065

REACTIONS (2)
  - Lichen sclerosus [Unknown]
  - Condition aggravated [Unknown]
